FAERS Safety Report 23510918 (Version 1)
Quarter: 2024Q1

REPORT INFORMATION
  Report Type: Spontaneous
  Country: US (occurrence: US)
  Receive Date: 20240212
  Receipt Date: 20240212
  Transmission Date: 20240410
  Serious: No
  Sender: FDA-Public Use
  Company Number: US-TEVA-VS-3138277

PATIENT

DRUGS (1)
  1. CLONAZEPAM [Suspect]
     Active Substance: CLONAZEPAM
     Indication: Fibromyalgia
     Dosage: CLONAZEPAM ORALLY?DISINTEGRATING TABLETS.
     Route: 048

REACTIONS (2)
  - Insomnia [Unknown]
  - Drug effect less than expected [Unknown]
